FAERS Safety Report 16414135 (Version 2)
Quarter: 2019Q2

REPORT INFORMATION
  Report Type: Report from Study
  Country: None (occurrence: PT)
  Receive Date: 20190611
  Receipt Date: 20190627
  Transmission Date: 20190711
  Serious: Yes (Other)
  Sender: FDA-Public Use
  Company Number: PT-ABBVIE-19K-130-2793926-00

PATIENT
  Age: 43 Year
  Sex: Female

DRUGS (1)
  1. HUMIRA [Suspect]
     Active Substance: ADALIMUMAB
     Indication: ANKYLOSING SPONDYLITIS
     Route: 058
     Dates: start: 20181123

REACTIONS (14)
  - Nausea [Recovered/Resolved]
  - Rash macular [Not Recovered/Not Resolved]
  - Drug hypersensitivity [Recovered/Resolved]
  - Ear discomfort [Not Recovered/Not Resolved]
  - Vocal cord paralysis [Recovered/Resolved]
  - Swelling face [Recovered/Resolved]
  - Burning sensation [Recovered/Resolved]
  - Measles [Recovered/Resolved]
  - Chest discomfort [Recovered/Resolved]
  - Dysphonia [Not Recovered/Not Resolved]
  - Adverse food reaction [Recovered/Resolved]
  - Dyspnoea [Recovered/Resolved]
  - Feeling abnormal [Recovered/Resolved]
  - Dyspepsia [Not Recovered/Not Resolved]

NARRATIVE: CASE EVENT DATE: 2019
